FAERS Safety Report 8204165-5 (Version None)
Quarter: 2012Q1

REPORT INFORMATION
  Report Type: 
  Country: None (occurrence: None)
  Receive Date: 20120313
  Receipt Date: 20120305
  Transmission Date: 20120608
  Serious: Yes (Hospitalization)
  Sender: FDA-Public Use
  Company Number: US-ASTELLAS-2012US002595

PATIENT
  Sex: Female
  Weight: 54 kg

DRUGS (3)
  1. PROGRAF [Suspect]
     Indication: RENAL TRANSPLANT
     Dosage: 2 MG, BID
     Route: 048
     Dates: start: 20080101
  2. OMEPRAZOLE [Concomitant]
     Indication: ANTACID THERAPY
     Dosage: UNK
     Route: 065
     Dates: start: 20070310
  3. PREDNISONE [Concomitant]
     Indication: RENAL TRANSPLANT
     Dosage: 5 MG, UID/QD
     Route: 048
     Dates: start: 20070310

REACTIONS (3)
  - POLYNEUROPATHY CHRONIC [None]
  - ESCHERICHIA INFECTION [None]
  - URINARY TRACT INFECTION [None]
